FAERS Safety Report 5264846-2 (Version None)
Quarter: 2007Q1

REPORT INFORMATION
  Report Type: 
  Country: None (occurrence: None)
  Receive Date: 20070314
  Receipt Date: 20070306
  Transmission Date: 20070707
  Serious: Yes (Other)
  Sender: FDA-Public Use
  Company Number: RU-GLAXOSMITHKLINE-B0459609A

PATIENT
  Age: 14 Year
  Sex: Male
  Weight: 46 kg

DRUGS (1)
  1. FLIXOTIDE [Suspect]
     Indication: ASTHMA
     Route: 055
     Dates: start: 20050101

REACTIONS (1)
  - RADIUS FRACTURE [None]
